FAERS Safety Report 7345143-8 (Version None)
Quarter: 2011Q1

REPORT INFORMATION
  Report Type: 
  Country: None (occurrence: None)
  Receive Date: 20110310
  Receipt Date: 20110301
  Transmission Date: 20110831
  Serious: Yes (Hospitalization)
  Sender: FDA-Public Use
  Company Number: US-ASTRAZENECA-2011SE11615

PATIENT
  Age: 58 Year
  Sex: Female

DRUGS (2)
  1. SPIRIVA [Concomitant]
  2. SYMBICORT [Suspect]
     Indication: CHRONIC OBSTRUCTIVE PULMONARY DISEASE
     Dosage: 80/4.5 MCG
     Route: 055

REACTIONS (3)
  - PNEUMONIA [None]
  - MUSCLE DISORDER [None]
  - INFLUENZA [None]
